FAERS Safety Report 8457652-9 (Version None)
Quarter: 2012Q2

REPORT INFORMATION
  Report Type: 
  Country: None (occurrence: None)
  Receive Date: 20120622
  Receipt Date: 20120619
  Transmission Date: 20120825
  Serious: No
  Sender: FDA-Public Use
  Company Number: US-PFIZER INC-2012147880

PATIENT
  Sex: Female
  Weight: 44 kg

DRUGS (2)
  1. ALTACE [Suspect]
     Indication: HYPERTENSION
     Dosage: 5 MG, 1X/DAY
     Route: 048
     Dates: start: 20120201
  2. THYROID TAB [Concomitant]
     Indication: HYPOTHYROIDISM
     Dosage: UNK

REACTIONS (1)
  - ALOPECIA [None]
